FAERS Safety Report 4514945-5 (Version None)
Quarter: 2004Q4

REPORT INFORMATION
  Report Type: 
  Country: None (occurrence: None)
  Receive Date: 20041201
  Receipt Date: 20040803
  Transmission Date: 20050328
  Serious: Yes (Death)
  Sender: FDA-Public Use
  Company Number: 200412497JP

PATIENT
  Age: 70 Year
  Sex: Male
  Weight: 39.7 kg

DRUGS (12)
  1. LASIX [Suspect]
     Route: 048
     Dates: end: 20040712
  2. POLITOSE [Suspect]
     Route: 048
     Dates: end: 20040712
  3. GASMOTIN [Suspect]
     Dosage: DOSE: 3 TABLETS/DAY
     Route: 048
     Dates: end: 20040712
  4. ROCALTROL [Suspect]
     Route: 048
     Dates: end: 20040712
  5. DIOVAN [Suspect]
     Route: 048
     Dates: start: 20040612, end: 20040712
  6. LENDORMIN [Suspect]
     Route: 048
     Dates: end: 20040729
  7. ATARAX [Suspect]
     Route: 048
     Dates: end: 20040729
  8. ALINAMIN F [Suspect]
     Dosage: DOSE: 3 TABLETS
     Route: 048
     Dates: start: 20040612, end: 20040714
  9. NEO-MINOPHAGEN C [Suspect]
     Dosage: DOSE: 6 TABLETS/DAY
     Route: 048
     Dates: end: 20040712
  10. BIOFERMIN [Suspect]
     Route: 048
     Dates: end: 20040712
  11. ENSURE [Concomitant]
  12. ALBUMIN (HUMAN) [Concomitant]

REACTIONS (12)
  - BLOOD ALBUMIN DECREASED [None]
  - BLOOD UREA INCREASED [None]
  - ERYTHEMA [None]
  - EXCORIATION [None]
  - GENERAL PHYSICAL HEALTH DETERIORATION [None]
  - HAEMATOCRIT DECREASED [None]
  - MARKEDLY REDUCED DIETARY INTAKE [None]
  - PLATELET COUNT DECREASED [None]
  - PRURITUS [None]
  - SEPSIS [None]
  - STEVENS-JOHNSON SYNDROME [None]
  - WHITE BLOOD CELL COUNT INCREASED [None]
